FAERS Safety Report 5441267-0 (Version None)
Quarter: 2007Q3

REPORT INFORMATION
  Report Type: 
  Country: None (occurrence: None)
  Receive Date: 20070901
  Receipt Date: 20070822
  Transmission Date: 20080115
  Serious: Yes (Other)
  Sender: FDA-Public Use
  Company Number: FR-PFIZER INC-2007071558

PATIENT
  Age: 32 Year
  Sex: Male

DRUGS (2)
  1. CHAMPIX [Suspect]
     Dates: start: 20070814, end: 20070816
  2. ASCORBIC ACID [Concomitant]

REACTIONS (3)
  - BLISTER [None]
  - BURNING SENSATION [None]
  - HYPERSENSITIVITY [None]
